FAERS Safety Report 5272699-1 (Version None)
Quarter: 2007Q1

REPORT INFORMATION
  Report Type: 
  Country: None (occurrence: None)
  Receive Date: 20070322
  Receipt Date: 20070307
  Transmission Date: 20070707
  Serious: Yes (Hospitalization)
  Sender: FDA-Public Use
  Company Number: HQWYE228109MAR07

PATIENT
  Sex: Male

DRUGS (7)
  1. ENBREL [Suspect]
     Indication: RHEUMATOID ARTHRITIS
     Route: 058
     Dates: start: 20060630, end: 20070201
  2. GASTER [Concomitant]
     Dosage: UNKNOWN
     Route: 048
  3. FOSAMAX [Concomitant]
     Dosage: UNKNOWN
     Route: 048
  4. VOLTAREN [Concomitant]
     Dosage: UNKNOWN
     Route: 054
  5. PREDONINE [Concomitant]
     Dosage: UNKNOWN
     Route: 048
  6. METHOTREXATE [Concomitant]
     Dosage: UNKNOWN
     Route: 048
  7. MOBIC [Concomitant]
     Dosage: UNKNOWN
     Route: 048

REACTIONS (3)
  - PNEUMONIA BACTERIAL [None]
  - PNEUMOTHORAX [None]
  - RESPIRATORY FAILURE [None]
